FAERS Safety Report 23630176 (Version 2)
Quarter: 2024Q1

REPORT INFORMATION
  Report Type: Report from Study
  Country: CA (occurrence: CA)
  Receive Date: 20240314
  Receipt Date: 20240318
  Transmission Date: 20240410
  Serious: Yes (Hospitalization)
  Sender: FDA-Public Use
  Company Number: CA-JNJFOC-20240315505

PATIENT
  Age: 42 Year
  Sex: Female

DRUGS (1)
  1. SIMPONI [Suspect]
     Active Substance: GOLIMUMAB
     Indication: Crohn^s disease
     Dosage: ( ONE 100MG +ONE 50MG AI)
     Route: 058
     Dates: start: 20141120

REACTIONS (5)
  - Kidney infection [Unknown]
  - Nephrolithiasis [Unknown]
  - COVID-19 [Unknown]
  - Mouth ulceration [Unknown]
  - Pharyngeal ulceration [Unknown]

NARRATIVE: CASE EVENT DATE: 20240201
